FAERS Safety Report 4360036-6 (Version None)
Quarter: 2004Q2

REPORT INFORMATION
  Report Type: 
  Country: None (occurrence: None)
  Receive Date: 20040513
  Receipt Date: 20040303
  Transmission Date: 20050107
  Serious: No
  Sender: FDA-Public Use
  Company Number: 04-062

PATIENT
  Sex: Male

DRUGS (1)
  1. DOXEPIN HCL [Suspect]
     Dosage: 1 X A DAY
     Dates: start: 20040303

REACTIONS (1)
  - LOSS OF CONSCIOUSNESS [None]
